FAERS Safety Report 19906211 (Version 1)
Quarter: 2021Q4

REPORT INFORMATION
  Report Type: Spontaneous
  Country: US (occurrence: US)
  Receive Date: 20211001
  Receipt Date: 20211001
  Transmission Date: 20220303
  Serious: No
  Sender: FDA-Public Use
  Company Number: US-VERTEX PHARMACEUTICALS-2021-015079

PATIENT
  Sex: Male

DRUGS (4)
  1. ORKAMBI [Suspect]
     Active Substance: IVACAFTOR\LUMACAFTOR
     Indication: Cystic fibrosis
     Dosage: 100 MG LUMACAFTOR/ 125 MG IVACAFTOR
     Route: 048
  2. ORKAMBI [Suspect]
     Active Substance: IVACAFTOR\LUMACAFTOR
     Dosage: ON HALF DOSE
     Route: 048
     Dates: start: 20210908
  3. ORKAMBI [Suspect]
     Active Substance: IVACAFTOR\LUMACAFTOR
     Dosage: RESTARTED ON FULL DOSE
     Route: 048
     Dates: start: 20210916
  4. ORKAMBI [Suspect]
     Active Substance: IVACAFTOR\LUMACAFTOR
     Dosage: ON HALF DOSE
     Route: 048
     Dates: start: 20210927

REACTIONS (4)
  - Irritability [Not Recovered/Not Resolved]
  - Anger [Unknown]
  - Aggression [Unknown]
  - Fear [Unknown]

NARRATIVE: CASE EVENT DATE: 20210101
